FAERS Safety Report 4390215-3 (Version None)
Quarter: 2004Q2

REPORT INFORMATION
  Report Type: 
  Country: None (occurrence: None)
  Receive Date: 20040630
  Receipt Date: 20040615
  Transmission Date: 20050107
  Serious: Yes (Death)
  Sender: FDA-Public Use
  Company Number: 2004-DE-03325GD

PATIENT
  Age: 43 Year
  Sex: Male

DRUGS (8)
  1. MEXILETINE HCL [Suspect]
     Indication: ARRHYTHMIA
     Dosage: 300 MG PO
     Route: 048
  2. AMIODARONE HCL [Suspect]
     Indication: ARRHYTHMIA
     Dosage: PO
     Route: 048
  3. CARVEDILOL [Concomitant]
  4. CANDESARTAN (CANDESARTAN) (NR) [Concomitant]
  5. FUROSEMIDE [Concomitant]
  6. SPIRONOLACTONE (SPIRONOLACTONE) (NR) [Concomitant]
  7. HALOPERIDOL (HALOPERIDOL) (NR) [Concomitant]
  8. BIPERIDEN (BIPERIDEN) (NR) [Concomitant]

REACTIONS (6)
  - ARTERIAL OCCLUSIVE DISEASE [None]
  - CARDIAC ARREST [None]
  - CARDIOMEGALY [None]
  - HYPOTHYROIDISM [None]
  - SCHIZOPHRENIA [None]
  - VENTRICULAR FIBRILLATION [None]
